FAERS Safety Report 13544696 (Version 1)
Quarter: 2017Q2

REPORT INFORMATION
  Report Type: Spontaneous
  Country: US (occurrence: US)
  Receive Date: 20170515
  Receipt Date: 20170515
  Transmission Date: 20170830
  Serious: No
  Sender: FDA-Public Use
  Company Number: US-BEH-2017080391

PATIENT
  Age: 33 Year
  Sex: Female
  Weight: 102 kg

DRUGS (4)
  1. METFORMIN [Concomitant]
     Active Substance: METFORMIN HYDROCHLORIDE
     Route: 065
  2. DESMOPRESSIN (INN) [Suspect]
     Active Substance: DESMOPRESSIN
     Indication: DIABETES INSIPIDUS
     Dosage: 2 SPRAYS, BID
     Route: 045
  3. DESMOPRESSIN (INN) [Suspect]
     Active Substance: DESMOPRESSIN
     Dosage: 2 SPRAYS
     Route: 045
     Dates: start: 20170314, end: 20170314
  4. ETHINYLESTRADIOL W/NORETHISTERONE ACETATE [Concomitant]
     Route: 065

REACTIONS (7)
  - Palpitations [Recovered/Resolved]
  - Dizziness [Recovered/Resolved]
  - Vomiting [Recovered/Resolved]
  - Product odour abnormal [Recovered/Resolved]
  - Tremor [Recovered/Resolved]
  - Dyspnoea [Recovered/Resolved]
  - Nausea [Recovered/Resolved]

NARRATIVE: CASE EVENT DATE: 20170314
